FAERS Safety Report 5403487-0 (Version None)
Quarter: 2007Q3

REPORT INFORMATION
  Report Type: 
  Country: None (occurrence: None)
  Receive Date: 20070730
  Receipt Date: 20070724
  Transmission Date: 20080115
  Serious: Yes (Death)
  Sender: FDA-Public Use
  Company Number: 056-C5013-07071257

PATIENT
  Age: 58 Year
  Sex: Male

DRUGS (1)
  1. CC-5013 (LENALIDOME) (CAPSULES) [Suspect]
     Indication: MULTIPLE MYELOMA
     Dosage: 25 MG, DAILY, ORAL
     Route: 048
     Dates: start: 20070101, end: 20070101

REACTIONS (2)
  - SEPTIC SHOCK [None]
  - STAPHYLOCOCCAL INFECTION [None]
